FAERS Safety Report 6114535-7 (Version None)
Quarter: 2009Q1

REPORT INFORMATION
  Report Type: 
  Country: None (occurrence: None)
  Receive Date: 20090313
  Receipt Date: 20090306
  Transmission Date: 20090719
  Serious: Yes (Hospitalization)
  Sender: FDA-Public Use
  Company Number: SE-AVENTIS-200820859GDDC

PATIENT
  Age: 61 Year
  Sex: Male
  Weight: 138.2 kg

DRUGS (9)
  1. GLIMEPIRIDE [Suspect]
     Dosage: DOSE: GLIMEPIRIDE TITRATED DOSE BETWEEN 1 MG AND 6 MG
     Route: 048
     Dates: start: 20080320
  2. METFORMIN HCL [Concomitant]
     Dates: start: 19980101
  3. SIMVASTATIN [Concomitant]
     Dates: start: 20060101
  4. LASIX LONG [Concomitant]
     Indication: HYPERTENSION
     Dates: start: 19880101
  5. AMLODIPINE [Concomitant]
     Indication: HYPERTENSION
     Dates: start: 19880101
  6. METOPROLOL TARTRATE [Concomitant]
     Indication: HYPERTENSION
     Dates: start: 19880101
  7. TROMBYL [Concomitant]
     Dates: start: 19980101
  8. SPIRONOLAKTON [Concomitant]
     Indication: HYPERTENSION
     Dates: start: 19980101
  9. SALURES [Concomitant]
     Indication: HYPERTENSION
     Dates: start: 20081017

REACTIONS (1)
  - CHEST DISCOMFORT [None]
